FAERS Safety Report 5652003-7 (Version None)
Quarter: 2008Q1

REPORT INFORMATION
  Report Type: 
  Country: None (occurrence: None)
  Receive Date: 20080305
  Receipt Date: 20080222
  Transmission Date: 20080703
  Serious: Yes (Hospitalization, Other)
  Sender: FDA-Public Use
  Company Number: US-PFIZER INC-2008017635

PATIENT
  Sex: Male
  Weight: 109.09 kg

DRUGS (11)
  1. LYRICA [Suspect]
     Route: 048
  2. ACTOS [Interacting]
     Indication: DIABETES MELLITUS
  3. SITAGLIPTIN [Concomitant]
  4. QUINAPRIL HCL [Concomitant]
  5. GLYSET [Concomitant]
  6. METFORMIN HCL [Concomitant]
  7. CRESTOR [Concomitant]
  8. ASPIRIN [Concomitant]
  9. GLUCOSAMINE [Concomitant]
  10. FISH OIL [Concomitant]
  11. ALL OTHER THERAPEUTIC PRODUCTS [Concomitant]

REACTIONS (2)
  - DRUG INTERACTION [None]
  - PAIN [None]
